FAERS Safety Report 5847840-X (Version None)
Quarter: 2008Q3

REPORT INFORMATION
  Report Type: 
  Country: None (occurrence: None)
  Receive Date: 20080814
  Receipt Date: 20080814
  Transmission Date: 20090109
  Serious: Yes (Hospitalization)
  Sender: FDA-Public Use
  Company Number: None

PATIENT
  Age: 62 Year
  Sex: Male
  Weight: 70 kg

DRUGS (15)
  1. NEXAVAR [Suspect]
     Indication: MYELOID LEUKAEMIA
     Dosage: 400 MG BID PO, 10 DAYS
     Route: 048
  2. ACETAMINOPHEN [Concomitant]
  3. ACYCLOVIR [Concomitant]
  4. AMLODIPINE [Concomitant]
  5. CEFEPIME [Concomitant]
  6. DIPHENHYDRAMINE HCL [Concomitant]
  7. FOSINOPRIL SODIUM [Concomitant]
  8. LINEZOLID [Concomitant]
  9. METRONIDAZOLE [Concomitant]
  10. MORPHINE [Concomitant]
  11. ONDANSETRON [Concomitant]
  12. PANTOPRAZOLE SODIUM [Concomitant]
  13. POSACONAZOLE [Concomitant]
  14. PROPRANOLOL [Concomitant]
  15. SIMETHICONE [Concomitant]

REACTIONS (1)
  - SMALL INTESTINAL OBSTRUCTION [None]
